FAERS Safety Report 17173040 (Version 1)
Quarter: 2019Q4

REPORT INFORMATION
  Report Type: Spontaneous
  Country: NL (occurrence: SE)
  Receive Date: 20191219
  Receipt Date: 20191219
  Transmission Date: 20200122
  Serious: Yes (Hospitalization)
  Sender: FDA-Public Use
  Company Number: SE-BAYER-2019-230293

PATIENT
  Age: 30 Year
  Sex: Male

DRUGS (3)
  1. CLARITINE 10 MG [Suspect]
     Active Substance: LORATADINE
     Dosage: 30 MG, UNK
     Route: 048
     Dates: start: 20190321, end: 20190321
  2. PROPAVAN [Suspect]
     Active Substance: PROPIOMAZINE
     Dosage: 200 MG, UNK
     Route: 048
     Dates: start: 20190321, end: 20190321
  3. OLANZAPINE. [Suspect]
     Active Substance: OLANZAPINE
     Dosage: 40 MG, UNK
     Route: 048
     Dates: start: 20190321, end: 20190321

REACTIONS (3)
  - Intentional overdose [Unknown]
  - Fatigue [Unknown]
  - Intentional self-injury [Unknown]

NARRATIVE: CASE EVENT DATE: 20190321
